FAERS Safety Report 8136726-6 (Version None)
Quarter: 2012Q1

REPORT INFORMATION
  Report Type: 
  Country: None (occurrence: None)
  Receive Date: 20120214
  Receipt Date: 20120131
  Transmission Date: 20120608
  Serious: Yes (Hospitalization, Other)
  Sender: FDA-Public Use
  Company Number: BR-MEDIMMUNE-MEDI-0013195

PATIENT
  Sex: Male
  Weight: 4.8 kg

DRUGS (2)
  1. SYNAGIS [Suspect]
     Indication: BRONCHOPULMONARY DYSPLASIA
     Dates: start: 20110401, end: 20110401
  2. SYNAGIS [Suspect]
     Dates: start: 20110901, end: 20110901

REACTIONS (8)
  - PNEUMONIA [None]
  - HERNIA [None]
  - NASOPHARYNGITIS [None]
  - FATIGUE [None]
  - ASTHENIA [None]
  - BRONCHIOLITIS [None]
  - HYDROCEPHALUS [None]
  - INTESTINAL PERFORATION [None]
